FAERS Safety Report 4466400-9 (Version None)
Quarter: 2004Q3

REPORT INFORMATION
  Report Type: 
  Country: None (occurrence: None)
  Receive Date: 20040930
  Receipt Date: 20040917
  Transmission Date: 20050211
  Serious: Yes (Other)
  Sender: FDA-Public Use
  Company Number: 2004066646

PATIENT
  Age: 76 Year
  Sex: Male
  Weight: 93.441 kg

DRUGS (8)
  1. LIPITOR [Suspect]
     Indication: BLOOD CHOLESTEROL INCREASED
     Dosage: ORAL
     Route: 048
  2. NORVASC [Suspect]
     Indication: HYPERTENSION
     Dosage: ORAL
     Route: 048
  3. CLOPIDOGREL BISULFATE [Concomitant]
  4. ESOMEPRAZOLE (ESOMEPRAZOLE) [Concomitant]
  5. ATENOLOL [Concomitant]
  6. DIAZEPAM [Concomitant]
  7. ISOSORBIDE MONONITRATE [Concomitant]
  8. ASPIRIN [Concomitant]

REACTIONS (6)
  - ARTHRITIS [None]
  - BURSITIS [None]
  - CEREBROVASCULAR ACCIDENT [None]
  - GASTROOESOPHAGEAL REFLUX DISEASE [None]
  - HYPERTONIC BLADDER [None]
  - PROSTATE CANCER [None]
